FAERS Safety Report 4512593-4 (Version None)
Quarter: 2004Q4

REPORT INFORMATION
  Report Type: 
  Country: None (occurrence: None)
  Receive Date: 20041129
  Receipt Date: 20041104
  Transmission Date: 20050328
  Serious: Yes (Death, Other)
  Sender: FDA-Public Use
  Company Number: US-MERCK-0411USA00708

PATIENT
  Age: 81 Year
  Sex: Female

DRUGS (2)
  1. VIOXX [Suspect]
     Route: 048
     Dates: start: 20030501
  2. LEXAPRO [Concomitant]
     Route: 065

REACTIONS (10)
  - AGITATION [None]
  - CARDIAC FAILURE [None]
  - CEREBROVASCULAR ACCIDENT [None]
  - CHEST PAIN [None]
  - DIFFICULTY IN WALKING [None]
  - EATING DISORDER [None]
  - GASTRIC HAEMORRHAGE [None]
  - GENERAL SYMPTOM [None]
  - OEDEMA PERIPHERAL [None]
  - OVARIAN CANCER [None]
